FAERS Safety Report 7653778-8 (Version None)
Quarter: 2011Q3

REPORT INFORMATION
  Report Type: 
  Country: None (occurrence: None)
  Receive Date: 20110803
  Receipt Date: 20110727
  Transmission Date: 20111222
  Serious: Yes (Other)
  Sender: FDA-Public Use
  Company Number: GB-GLAXOSMITHKLINE-B0735313A

PATIENT
  Age: 41 Year
  Sex: Female
  Weight: 92 kg

DRUGS (2)
  1. PAROXETINE HCL [Suspect]
     Route: 048
     Dates: start: 20110518
  2. DIAZEPAM [Concomitant]
     Indication: ANXIETY
     Route: 048
     Dates: start: 20110101

REACTIONS (3)
  - SLEEP DISORDER [None]
  - ANXIETY [None]
  - DYSPNOEA [None]
